FAERS Safety Report 6380030-3 (Version None)
Quarter: 2009Q3

REPORT INFORMATION
  Report Type: 
  Country: None (occurrence: None)
  Receive Date: 20090928
  Receipt Date: 20090923
  Transmission Date: 20100115
  Serious: Yes (Hospitalization)
  Sender: FDA-Public Use
  Company Number: US-WYE-H11193309

PATIENT
  Age: 52 Year
  Sex: Male
  Weight: 167.98 kg

DRUGS (7)
  1. AMIODARONE HCL [Suspect]
     Route: 048
     Dates: start: 20090814
  2. COREG [Concomitant]
  3. LANTUS [Concomitant]
     Dosage: 40 UNIT EVERY 1 DAY
     Route: 058
  4. METFORMIN HCL [Concomitant]
  5. LISINOPRIL [Concomitant]
  6. CLONIDINE [Suspect]
     Indication: BLOOD PRESSURE
     Route: 048
     Dates: start: 20090814, end: 20090815
  7. WARFARIN [Concomitant]

REACTIONS (13)
  - ATRIAL FLUTTER [None]
  - BLOOD PRESSURE INADEQUATELY CONTROLLED [None]
  - CELLULITIS [None]
  - DRUG INTERACTION [None]
  - DYSPNOEA [None]
  - HYPERHIDROSIS [None]
  - HYPERTENSION [None]
  - NAUSEA [None]
  - PRESYNCOPE [None]
  - PYREXIA [None]
  - SUDDEN HEARING LOSS [None]
  - TINNITUS [None]
  - VISUAL IMPAIRMENT [None]
